FAERS Safety Report 10466202 (Version 6)
Quarter: 2015Q2

REPORT INFORMATION
  Report Type: Spontaneous
  Country: US (occurrence: None)
  Receive Date: 20140918
  Receipt Date: 20150522
  Transmission Date: 20150821
  Serious: Yes (Death, Hospitalization, Other)
  Sender: FDA-Public Use
  Company Number: ADR-2014-01675

PATIENT
  Age: 63 Year
  Sex: Male

DRUGS (9)
  1. BUPIVACAINE INTRATHECAL [Suspect]
     Active Substance: BUPIVACAINE
     Indication: PAIN
  2. DILAUDID [Suspect]
     Active Substance: HYDROMORPHONE HYDROCHLORIDE
     Dosage: 40MG/ML; 15MG/DAY
  3. BACLOFEN. [Suspect]
     Active Substance: BACLOFEN
     Indication: PAIN
  4. PERCOCET [Suspect]
     Active Substance: ACETAMINOPHEN\OXYCODONE HYDROCHLORIDE
  5. BACLOFEN. [Suspect]
     Active Substance: BACLOFEN
  6. ZOFRAN [Suspect]
     Active Substance: ONDANSETRON HYDROCHLORIDE
  7. AMBIEN [Suspect]
     Active Substance: ZOLPIDEM TARTRATE
  8. LINZESS [Suspect]
     Active Substance: LINACLOTIDE
  9. AMITIZA [Suspect]
     Active Substance: LUBIPROSTONE

REACTIONS (21)
  - Accidental overdose [None]
  - Diabetic ketoacidosis [None]
  - Hypopnoea [None]
  - Device infusion issue [None]
  - Type 2 diabetes mellitus [None]
  - Electrolyte imbalance [None]
  - Lethargy [None]
  - Nephrosclerosis [None]
  - Unresponsive to stimuli [None]
  - Decreased appetite [None]
  - Cardiomegaly [None]
  - Device leakage [None]
  - Weight decreased [None]
  - Hypertension [None]
  - Pulmonary congestion [None]
  - Device malfunction [None]
  - Depression [None]
  - Disease complication [None]
  - Chronic kidney disease [None]
  - Fall [None]
  - Pain [None]
